FAERS Safety Report 5939503-7 (Version None)
Quarter: 2008Q4

REPORT INFORMATION
  Report Type: 
  Country: None (occurrence: None)
  Receive Date: 20081103
  Receipt Date: 20080621
  Transmission Date: 20090506
  Serious: Yes (Death)
  Sender: FDA-Public Use
  Company Number: US-AMGEN-US284729

PATIENT
  Sex: Male

DRUGS (12)
  1. ENBREL [Suspect]
     Indication: RHEUMATOID ARTHRITIS
     Route: 065
     Dates: start: 20030502, end: 20080125
  2. CELEXA [Concomitant]
     Route: 048
     Dates: end: 20080108
  3. POTASSIUM CHLORIDE [Concomitant]
     Route: 048
     Dates: end: 20080108
  4. ALTACE [Concomitant]
     Route: 048
     Dates: end: 20080108
  5. LASIX [Concomitant]
     Route: 048
     Dates: end: 20080117
  6. COREG [Concomitant]
     Route: 048
     Dates: end: 20080117
  7. LIPITOR [Concomitant]
     Route: 048
     Dates: start: 20080108
  8. PLAVIX [Concomitant]
     Route: 048
     Dates: start: 20080108
  9. PREDNISONE TAB [Concomitant]
     Route: 048
     Dates: end: 20080117
  10. PREDNISONE TAB [Concomitant]
     Route: 048
     Dates: start: 20080108, end: 20080110
  11. PREDNISONE TAB [Concomitant]
     Route: 048
     Dates: start: 20080111, end: 20080113
  12. PREDNISONE TAB [Concomitant]
     Route: 048
     Dates: start: 20080114, end: 20080116

REACTIONS (1)
  - DEATH [None]
